FAERS Safety Report 4949215-4 (Version None)
Quarter: 2006Q1

REPORT INFORMATION
  Report Type: 
  Country: None (occurrence: None)
  Receive Date: 20060321
  Receipt Date: 20060308
  Transmission Date: 20060701
  Serious: Yes (Other)
  Sender: FDA-Public Use
  Company Number: US-ROCHE-440097

PATIENT
  Sex: Male
  Weight: 2.9 kg

DRUGS (4)
  1. ACCUTANE [Suspect]
     Indication: ACNE
     Dosage: TDD WERE TAKEN ON ALTERNATIVE DAYS.
     Dates: start: 19941216, end: 19950502
  2. ACCUTANE [Suspect]
     Dosage: TDD WERE TAKEN ON ALTERNATIVE DAYS.
     Dates: start: 19960726
  3. ACCUTANE [Suspect]
     Dates: start: 19961129
  4. ORTHO TRI-CYCLEN [Concomitant]

REACTIONS (22)
  - ABORTION THREATENED [None]
  - ALOPECIA [None]
  - ARTHRALGIA [None]
  - COLITIS ULCERATIVE [None]
  - DRUG EXPOSURE BEFORE PREGNANCY [None]
  - FATIGUE [None]
  - FIBROMYALGIA [None]
  - HEART RATE INCREASED [None]
  - INSOMNIA [None]
  - INTESTINAL OBSTRUCTION [None]
  - NORMAL NEWBORN [None]
  - POLYCYSTIC OVARIES [None]
  - PREGNANCY [None]
  - RECTAL HAEMORRHAGE [None]
  - RESTLESSNESS [None]
  - SUICIDAL IDEATION [None]
  - SYSTEMIC LUPUS ERYTHEMATOSUS [None]
  - URINARY TRACT INFECTION [None]
  - VAGINAL CANDIDIASIS [None]
  - VAGINAL HAEMORRHAGE [None]
  - VAGINITIS BACTERIAL [None]
  - VISUAL DISTURBANCE [None]
